FAERS Safety Report 7029664-3 (Version None)
Quarter: 2010Q4

REPORT INFORMATION
  Report Type: 
  Country: None (occurrence: None)
  Receive Date: 20101005
  Receipt Date: 20100923
  Transmission Date: 20110411
  Serious: Yes (Other)
  Sender: FDA-Public Use
  Company Number: CA-MERCK-1009USA04943

PATIENT
  Age: 68 Year
  Sex: Male
  Weight: 120 kg

DRUGS (6)
  1. ZOCOR [Suspect]
     Route: 048
  2. ST JOHNS WORT [Concomitant]
     Route: 065
  3. MINERALS (UNSPECIFIED) AND VITAMINS (UNSPECIFIED) [Concomitant]
     Route: 065
  4. METFORMIN [Concomitant]
     Route: 065
  5. FUROSEMIDE [Concomitant]
     Route: 065
  6. ENALAPRIL MALEATE [Concomitant]
     Route: 048

REACTIONS (7)
  - BALANCE DISORDER [None]
  - DECREASED ACTIVITY [None]
  - FATIGUE [None]
  - MUSCLE DISORDER [None]
  - MUSCULAR WEAKNESS [None]
  - SOMNOLENCE [None]
  - WEIGHT INCREASED [None]
